FAERS Safety Report 4898784-1 (Version None)
Quarter: 2006Q1

REPORT INFORMATION
  Report Type: 
  Country: None (occurrence: None)
  Receive Date: 20060127
  Receipt Date: 20060117
  Transmission Date: 20060701
  Serious: Yes (Other)
  Sender: FDA-Public Use
  Company Number: 02US000153

PATIENT
  Age: 46 Year
  Sex: Female
  Weight: 86.2 kg

DRUGS (5)
  1. LITHIUM CARBONATE [Suspect]
     Indication: BIPOLAR DISORDER
     Dosage: 600 MG, BID, ORAL
     Route: 048
     Dates: start: 19930101, end: 20011001
  2. ORAL CONTRACEPTIVE NOS (ORAL CONTRACEPTIVE NOS) [Concomitant]
  3. NEURONTIN [Concomitant]
  4. CELEBREX [Concomitant]
  5. VICODIN [Concomitant]

REACTIONS (9)
  - ACTIVITIES OF DAILY LIVING IMPAIRED [None]
  - BLOOD CALCIUM INCREASED [None]
  - BONE LESION EXCISION [None]
  - CALCINOSIS [None]
  - DYSPNOEA [None]
  - MUSCLE ATROPHY [None]
  - RHABDOMYOLYSIS [None]
  - TENDONITIS [None]
  - THERAPEUTIC AGENT TOXICITY [None]
